FAERS Safety Report 22212137 (Version 1)
Quarter: 2023Q2

REPORT INFORMATION
  Report Type: Report from Study
  Country: US (occurrence: US)
  Receive Date: 20230414
  Receipt Date: 20230414
  Transmission Date: 20230721
  Serious: Yes (Hospitalization)
  Sender: FDA-Public Use
  Company Number: US-ORPHANEU-2023002184

PATIENT

DRUGS (4)
  1. SIGNIFOR LAR [Suspect]
     Active Substance: PASIREOTIDE PAMOATE
     Indication: Prolactin-producing pituitary tumour
     Dosage: 20 MILLIGRAM, QM
     Route: 030
     Dates: start: 2020, end: 202212
  2. SIGNIFOR LAR [Suspect]
     Active Substance: PASIREOTIDE PAMOATE
     Indication: Off label use
     Dosage: 40 MILLIGRAM, QM
     Route: 030
     Dates: start: 202212
  3. CABERGOLINE [Suspect]
     Active Substance: CABERGOLINE
     Indication: Prolactin-producing pituitary tumour
  4. LEVOTHYROXINE [Concomitant]
     Active Substance: LEVOTHYROXINE
     Indication: Product used for unknown indication

REACTIONS (4)
  - Pituitary gland operation [Unknown]
  - Glucose tolerance impaired [Unknown]
  - Drug ineffective for unapproved indication [Recovered/Resolved]
  - Drug effective for unapproved indication [Recovered/Resolved]
